FAERS Safety Report 21685571 (Version 2)
Quarter: 2022Q4

REPORT INFORMATION
  Report Type: Spontaneous
  Country: AU (occurrence: AU)
  Receive Date: 20221206
  Receipt Date: 20221227
  Transmission Date: 20230113
  Serious: Yes (Death, Other)
  Sender: FDA-Public Use
  Company Number: AU-JNJFOC-20221163047

PATIENT
  Age: 82 Year

DRUGS (2)
  1. IMBRUVICA [Suspect]
     Active Substance: IBRUTINIB
     Indication: Chronic lymphocytic leukaemia
     Dosage: 6TH LINE TREATMENT
     Route: 048
     Dates: start: 201812
  2. VENETOCLAX [Suspect]
     Active Substance: VENETOCLAX
     Indication: Chronic lymphocytic leukaemia
     Dosage: 6TH LINE TREATMENT
     Route: 048
     Dates: start: 201812

REACTIONS (2)
  - Death [Fatal]
  - Richter^s syndrome [Unknown]

NARRATIVE: CASE EVENT DATE: 20191001
